FAERS Safety Report 6943244-7 (Version None)
Quarter: 2010Q3

REPORT INFORMATION
  Report Type: 
  Country: None (occurrence: None)
  Receive Date: 20100826
  Receipt Date: 20100816
  Transmission Date: 20110219
  Serious: Yes (Death)
  Sender: FDA-Public Use
  Company Number: KR-PFIZER INC-2010102817

PATIENT

DRUGS (1)
  1. SUTENE [Suspect]
     Indication: RENAL CANCER
     Route: 048

REACTIONS (2)
  - BLOOD BILIRUBIN INCREASED [None]
  - DEATH [None]
